FAERS Safety Report 4758421-3 (Version None)
Quarter: 2005Q3

REPORT INFORMATION
  Report Type: 
  Country: None (occurrence: None)
  Receive Date: 20050826
  Receipt Date: 20050812
  Transmission Date: 20060218
  Serious: Yes (Hospitalization)
  Sender: FDA-Public Use
  Company Number: 2005-01734

PATIENT
  Age: 73 Year
  Sex: Female
  Weight: 53.5 kg

DRUGS (1)
  1. VELCADE [Suspect]
     Indication: MULTIPLE MYELOMA
     Dosage: 2.00 MG, INTRAVENOUS
     Route: 042
     Dates: start: 20050606, end: 20050616

REACTIONS (5)
  - AUTONOMIC NEUROPATHY [None]
  - HYPOTENSION [None]
  - INTESTINAL FUNCTIONAL DISORDER [None]
  - RASH [None]
  - URINARY RETENTION [None]
